FAERS Safety Report 11572097 (Version 3)
Quarter: 2018Q1

REPORT INFORMATION
  Report Type: Spontaneous
  Country: US (occurrence: US)
  Receive Date: 20150929
  Receipt Date: 20180228
  Transmission Date: 20180508
  Serious: Yes (Other)
  Sender: FDA-Public Use
  Company Number: US-SA-2015SA136401

PATIENT
  Age: 49 Year
  Sex: Female
  Weight: 72.57 kg

DRUGS (12)
  1. SINGULAIR [Concomitant]
     Active Substance: MONTELUKAST SODIUM
  2. MINERALS NOS/VITAMINS NOS [Concomitant]
  3. VITAMIN B12 [Concomitant]
     Active Substance: CYANOCOBALAMIN
  4. PULMICORT TURBUHALER [Concomitant]
     Active Substance: BUDESONIDE
  5. CINNAMON OIL [Concomitant]
     Active Substance: CINNAMON OIL
  6. CHONDROITIN SULFATE/GLUCOSAMINE [Concomitant]
  7. VITAMIN E [Concomitant]
     Active Substance: .ALPHA.-TOCOPHEROL
  8. AUBAGIO [Suspect]
     Active Substance: TERIFLUNOMIDE
     Indication: MULTIPLE SCLEROSIS
     Route: 048
     Dates: start: 201312
  9. AUBAGIO [Suspect]
     Active Substance: TERIFLUNOMIDE
     Indication: MULTIPLE SCLEROSIS
     Route: 048
     Dates: start: 201712
  10. ALBUTEROL. [Concomitant]
     Active Substance: ALBUTEROL
  11. ZYRTEC [Concomitant]
     Active Substance: CETIRIZINE HYDROCHLORIDE
  12. CALCIUM [Concomitant]
     Active Substance: CALCIUM

REACTIONS (10)
  - Ligament sprain [Unknown]
  - Alopecia [Unknown]
  - Limb injury [Unknown]
  - Hyperthyroidism [Unknown]
  - Fall [Unknown]
  - Infection [Unknown]
  - Nasopharyngitis [Unknown]
  - Vulvovaginal dryness [Unknown]
  - Urticaria [Recovering/Resolving]
  - Oropharyngeal pain [Unknown]

NARRATIVE: CASE EVENT DATE: 201312
